FAERS Safety Report 7555575-0 (Version None)
Quarter: 2011Q2

REPORT INFORMATION
  Report Type: 
  Country: None (occurrence: None)
  Receive Date: 20110617
  Receipt Date: 20071128
  Transmission Date: 20111010
  Serious: Yes (Hospitalization, Other)
  Sender: FDA-Public Use
  Company Number: PHHO2007VE07848

PATIENT
  Sex: Male

DRUGS (5)
  1. HIDROSMIN [Concomitant]
     Dosage: 200 MG, BID
  2. MADECASSOL [Concomitant]
  3. DIOVAN [Suspect]
     Dosage: 160 MG, QD
     Route: 048
  4. FLUCONAZOLE [Concomitant]
     Dosage: 150 MG, UNK
  5. MODURETIC 5-50 [Concomitant]
     Dosage: HALF TABLET / DAY

REACTIONS (6)
  - VARICOSE VEIN [None]
  - PYREXIA [None]
  - WOUND [None]
  - PERIPHERAL VASCULAR DISORDER [None]
  - DISCOMFORT [None]
  - INFECTION [None]
